FAERS Safety Report 16908416 (Version 1)
Quarter: 2019Q4

REPORT INFORMATION
  Report Type: Spontaneous
  Country: US (occurrence: US)
  Receive Date: 20191011
  Receipt Date: 20191011
  Transmission Date: 20200122
  Serious: No
  Sender: FDA-Public Use
  Company Number: US-ASTRAZENECA-2019SF31060

PATIENT
  Age: 53 Year
  Sex: Male
  Weight: 128.8 kg

DRUGS (13)
  1. KORLYM [Suspect]
     Active Substance: MIFEPRISTONE
     Indication: CUSHING^S SYNDROME
     Route: 065
     Dates: start: 20181125, end: 20181202
  2. ATORVASTATIN [Concomitant]
     Active Substance: ATORVASTATIN
  3. LOSARTAN. [Concomitant]
     Active Substance: LOSARTAN
  4. FISH OIL [Concomitant]
     Active Substance: FISH OIL
  5. RESVERATROL [Concomitant]
     Active Substance: DIETARY SUPPLEMENT\RESVERATROL
  6. METFORMIN [Suspect]
     Active Substance: METFORMIN HYDROCHLORIDE
     Indication: PRODUCT USED FOR UNKNOWN INDICATION
     Route: 048
  7. FARXIGA [Suspect]
     Active Substance: DAPAGLIFLOZIN PROPANEDIOL
     Indication: PRODUCT USED FOR UNKNOWN INDICATION
     Route: 048
  8. KORLYM [Suspect]
     Active Substance: MIFEPRISTONE
     Indication: CUSHING^S SYNDROME
     Route: 065
     Dates: start: 20181203, end: 2019
  9. KORLYM [Suspect]
     Active Substance: MIFEPRISTONE
     Indication: CUSHING^S SYNDROME
     Route: 065
     Dates: start: 2019
  10. FENOFIBRATE. [Concomitant]
     Active Substance: FENOFIBRATE
  11. GLUCOSAMINE [Concomitant]
     Active Substance: GLUCOSAMINE
  12. ASPIRIN. [Concomitant]
     Active Substance: ASPIRIN
  13. HUMULIN R [Suspect]
     Active Substance: INSULIN HUMAN
     Indication: PRODUCT USED FOR UNKNOWN INDICATION
     Route: 065

REACTIONS (16)
  - Myalgia [Not Recovered/Not Resolved]
  - Decreased appetite [Not Recovered/Not Resolved]
  - Flatulence [Not Recovered/Not Resolved]
  - Pollakiuria [Not Recovered/Not Resolved]
  - Central nervous system lesion [Unknown]
  - Migraine [Unknown]
  - Laziness [Unknown]
  - Constipation [Unknown]
  - Muscle atrophy [Unknown]
  - Nocturia [Unknown]
  - Muscle spasms [Unknown]
  - Headache [Unknown]
  - Prostatic disorder [Unknown]
  - Hypoglycaemia [Recovering/Resolving]
  - Abdominal pain upper [Recovered/Resolved]
  - Nausea [Not Recovered/Not Resolved]

NARRATIVE: CASE EVENT DATE: 2018
